FAERS Safety Report 9734771 (Version 1)
Quarter: 2013Q4

REPORT INFORMATION
  Report Type: Spontaneous
  Country: US (occurrence: None)
  Receive Date: 20131204
  Receipt Date: 20131204
  Transmission Date: 20140711
  Serious: Yes (Death, Hospitalization)
  Sender: FDA-Public Use
  Company Number: US-ALKEM-000406

PATIENT
  Age: 40 Year
  Sex: Male

DRUGS (2)
  1. GABAPENTIN (GABAPENTIN) [Suspect]
     Route: 048
  2. AMITRIPTYLINE (AMITRIPTYLINE) [Suspect]
     Route: 048

REACTIONS (11)
  - Toxicity to various agents [None]
  - Agitation [None]
  - Myoclonic epilepsy [None]
  - Ventricular tachycardia [None]
  - Electrocardiogram QRS complex prolonged [None]
  - Cardio-respiratory arrest [None]
  - Unresponsive to stimuli [None]
  - Blood pressure decreased [None]
  - Completed suicide [None]
  - Pain [None]
  - Blood pH decreased [None]
